FAERS Safety Report 16188162 (Version 2)
Quarter: 2019Q2

REPORT INFORMATION
  Report Type: Spontaneous
  Country: CA (occurrence: CA)
  Receive Date: 20190412
  Receipt Date: 20190522
  Transmission Date: 20190711
  Serious: Yes (Hospitalization, Other)
  Sender: FDA-Public Use
  Company Number: CA-AMGEN-CANSP2019057751

PATIENT
  Age: 70 Year
  Sex: Female

DRUGS (6)
  1. TAMBOCOR [Suspect]
     Active Substance: FLECAINIDE ACETATE
     Indication: ATRIAL FIBRILLATION
     Dosage: 50 MILLIGRAM, BID
     Route: 065
     Dates: end: 20181207
  2. AIMOVIG [Suspect]
     Active Substance: ERENUMAB-AOOE
     Dosage: 140 MILLIGRAM, QMO 2ND INJECTION
     Route: 058
  3. ELIQUIS [Concomitant]
     Active Substance: APIXABAN
     Indication: ANTICOAGULANT THERAPY
     Dosage: UNK
     Route: 065
  4. AIMOVIG [Suspect]
     Active Substance: ERENUMAB-AOOE
     Indication: MIGRAINE
     Dosage: 140 MILLIGRAM, QMO
     Route: 058
     Dates: start: 20181206
  5. AIMOVIG [Suspect]
     Active Substance: ERENUMAB-AOOE
     Dosage: 70 MILLIGRAM, QMO
     Route: 058
  6. AIMOVIG [Suspect]
     Active Substance: ERENUMAB-AOOE
     Dosage: 140 MILLIGRAM, QMO
     Route: 058
     Dates: start: 20190426

REACTIONS (8)
  - Atrial fibrillation [Recovered/Resolved]
  - Blood pressure increased [Unknown]
  - Colitis ischaemic [Unknown]
  - Pyrexia [Unknown]
  - Abdominal pain [Unknown]
  - Rectal haemorrhage [Unknown]
  - Diarrhoea [Unknown]
  - Migraine [Unknown]

NARRATIVE: CASE EVENT DATE: 20181207
